FAERS Safety Report 9778498 (Version 2)
Quarter: 2014Q1

REPORT INFORMATION
  Report Type: Spontaneous
  Country: GB (occurrence: GB)
  Receive Date: 20131223
  Receipt Date: 20140113
  Transmission Date: 20141002
  Serious: Yes (Death, Hospitalization, Other)
  Sender: FDA-Public Use
  Company Number: GB-B.I. PHARMACEUTICALS,INC./RIDGEFIELD-2013-BI-43346UK

PATIENT
  Age: 90 Year
  Sex: Female
  Weight: 60.8 kg

DRUGS (8)
  1. PRADAXA [Suspect]
     Indication: CEREBROVASCULAR ACCIDENT PROPHYLAXIS
     Dosage: 220 MG
  2. PRADAXA [Suspect]
     Indication: ATRIAL FIBRILLATION
  3. SENNA [Concomitant]
     Route: 048
  4. SOBELOL [Concomitant]
     Dosage: 80 MG
  5. ALENDROME [Concomitant]
  6. ADCAL D3 [Concomitant]
  7. TRAMADOL [Concomitant]
     Indication: PAIN
  8. PARACETAMOL [Concomitant]
     Indication: PAIN

REACTIONS (5)
  - Bronchopneumonia [Fatal]
  - Osteoporosis [Fatal]
  - Pneumonia [Fatal]
  - Respiratory failure [Fatal]
  - Lower respiratory tract infection [Unknown]
